FAERS Safety Report 5755382-5 (Version None)
Quarter: 2008Q2

REPORT INFORMATION
  Report Type: 
  Country: None (occurrence: None)
  Receive Date: 20080602
  Receipt Date: 20080521
  Transmission Date: 20081010
  Serious: Yes (Hospitalization, Disabling)
  Sender: FDA-Public Use
  Company Number: FI-ROCHE-565826

PATIENT
  Sex: Female

DRUGS (3)
  1. TAMIFLU [Suspect]
     Dosage: 2 CAPSULES
     Route: 048
     Dates: start: 20080304, end: 20080305
  2. TAMIFLU [Suspect]
     Route: 048
     Dates: start: 20080305, end: 20080308
  3. IBUXIN [Concomitant]
     Route: 048

REACTIONS (7)
  - DIZZINESS [None]
  - FALL [None]
  - FOOT FRACTURE [None]
  - GAIT DISTURBANCE [None]
  - MALAISE [None]
  - PAIN IN EXTREMITY [None]
  - ULCER [None]
